FAERS Safety Report 7720014-3 (Version None)
Quarter: 2011Q3

REPORT INFORMATION
  Report Type: 
  Country: None (occurrence: None)
  Receive Date: 20110831
  Receipt Date: 20110824
  Transmission Date: 20111222
  Serious: No
  Sender: FDA-Public Use
  Company Number: US-BIOGENIDEC-2011BI032913

PATIENT
  Age: 47 Year
  Sex: Male

DRUGS (4)
  1. AVONEX [Concomitant]
     Indication: MULTIPLE SCLEROSIS
     Route: 030
     Dates: start: 20100413
  2. TYSABRI [Suspect]
     Indication: MULTIPLE SCLEROSIS
     Route: 042
     Dates: start: 20100901
  3. TYSABRI [Suspect]
     Route: 042
     Dates: start: 20071218, end: 20100302
  4. AVONEX [Concomitant]
     Route: 030
     Dates: start: 20020503

REACTIONS (1)
  - DIZZINESS [None]
